FAERS Safety Report 7576172-7 (Version None)
Quarter: 2011Q2

REPORT INFORMATION
  Report Type: 
  Country: None (occurrence: None)
  Receive Date: 20110623
  Receipt Date: 20110623
  Transmission Date: 20111010
  Serious: Yes (Hospitalization)
  Sender: FDA-Public Use
  Company Number: None

PATIENT
  Sex: Male
  Weight: 72 kg

DRUGS (3)
  1. PEG-L-ASPARAGINASE (K-H) [Suspect]
     Dosage: 9200 UNIT
     Dates: end: 20110602
  2. VINCRISTINE SULFATE [Suspect]
     Dosage: 2 MG
  3. METHOTREXATE [Suspect]
     Dosage: 1318 MG

REACTIONS (2)
  - BLOOD CHOLESTEROL INCREASED [None]
  - BLOOD TRIGLYCERIDES INCREASED [None]
